FAERS Safety Report 9638992 (Version 1)
Quarter: 2013Q4

REPORT INFORMATION
  Report Type: Spontaneous
  Country: DE (occurrence: None)
  Receive Date: 20131018
  Receipt Date: 20131018
  Transmission Date: 20140711
  Serious: Yes (Hospitalization)
  Sender: FDA-Public Use
  Company Number: 1310-1300

PATIENT
  Age: 80 Year
  Sex: Male

DRUGS (2)
  1. EYLEA [Suspect]
  2. PREDNISONE [Suspect]

REACTIONS (5)
  - Photosensitivity reaction [None]
  - Diabetes mellitus inadequate control [None]
  - Cardiac disorder [None]
  - Gait disturbance [None]
  - Eye pain [None]
